FAERS Safety Report 7121042-1 (Version None)
Quarter: 2010Q4

REPORT INFORMATION
  Report Type: 
  Country: None (occurrence: None)
  Receive Date: 20101124
  Receipt Date: 20101119
  Transmission Date: 20110411
  Serious: Yes (Death)
  Sender: FDA-Public Use
  Company Number: DE-CELGENEUS-062-50794-10110534

PATIENT
  Age: 77 Year

DRUGS (2)
  1. VIDAZA [Suspect]
     Route: 065
     Dates: start: 20100501, end: 20100701
  2. BLOOD TRANSFUSION [Concomitant]
     Route: 065

REACTIONS (1)
  - ROAD TRAFFIC ACCIDENT [None]
